FAERS Safety Report 4985911-0 (Version None)
Quarter: 2006Q2

REPORT INFORMATION
  Report Type: 
  Country: None (occurrence: None)
  Receive Date: 20060421
  Receipt Date: 20060411
  Transmission Date: 20061013
  Serious: Yes (Hospitalization, Other)
  Sender: FDA-Public Use
  Company Number: 200610478GDS

PATIENT
  Age: 53 Year
  Sex: Male

DRUGS (6)
  1. CIPROFLOXACIN [Suspect]
  2. CYCLOSPORINE [Suspect]
  3. SEPTRA [Suspect]
     Dosage: Q2WK, ORAL
     Route: 048
  4. CLOXACILLIN SODIUM [Concomitant]
  5. SEPTRA [Concomitant]
  6. VANCOMYCIN [Concomitant]

REACTIONS (3)
  - BLOOD CREATININE INCREASED [None]
  - RENAL FAILURE ACUTE [None]
  - RENAL TUBULAR NECROSIS [None]
